FAERS Safety Report 19695213 (Version 1)
Quarter: 2021Q3

REPORT INFORMATION
  Report Type: Spontaneous
  Country: FR (occurrence: FR)
  Receive Date: 20210812
  Receipt Date: 20210812
  Transmission Date: 20211014
  Serious: Yes (Death)
  Sender: FDA-Public Use
  Company Number: FR-TEVA-2021-FR-1939493

PATIENT
  Age: 46 Year
  Sex: Male

DRUGS (11)
  1. ALPRAZOLAM. [Suspect]
     Active Substance: ALPRAZOLAM
     Dosage: UNSPECIFIED
     Route: 065
     Dates: end: 202106
  2. DIAZEPAM. [Suspect]
     Active Substance: DIAZEPAM
     Dosage: UNSPECIFIED
     Route: 065
     Dates: end: 202106
  3. TETRAHYDROCANNABINOL [Suspect]
     Active Substance: DRONABINOL
     Dosage: UNSPECIFIED
     Dates: end: 202106
  4. FLUVOXAMINE (MALEATE DE) [Suspect]
     Active Substance: FLUVOXAMINE MALEATE
     Dosage: UNSPECIFIED
     Route: 065
     Dates: end: 202106
  5. LOXAPINE (SUCCINATE DE) [Suspect]
     Active Substance: LOXAPINE SUCCINATE
     Dosage: UNSPECIFIED
     Route: 065
     Dates: end: 202106
  6. METHADONE [Suspect]
     Active Substance: METHADONE HYDROCHLORIDE
     Dosage: UNSPECIFIED
     Route: 065
     Dates: end: 202106
  7. NORDAZEPAM [Suspect]
     Active Substance: NORDAZEPAM
     Dosage: UNSPECIFIED
     Route: 065
     Dates: end: 202106
  8. CHLORHYDRATE D^HYDROXYZINE [Suspect]
     Active Substance: HYDROXYZINE HYDROCHLORIDE
     Dosage: UNSPECIFIED
     Route: 065
     Dates: end: 202106
  9. HALOPERIDOL. [Suspect]
     Active Substance: HALOPERIDOL
     Dosage: UNSPECIFIED
     Route: 065
     Dates: end: 202106
  10. CANNABINOIDS(CANNABINOIDS) [Suspect]
     Active Substance: CANNABIS SATIVA SUBSP. INDICA TOP
     Dosage: UNSPECIFIED
     Route: 065
     Dates: end: 202106
  11. OXAZEPAM. [Suspect]
     Active Substance: OXAZEPAM
     Dosage: UNSPECIFIED
     Route: 065
     Dates: end: 202106

REACTIONS (2)
  - Respiratory depression [Fatal]
  - Cardiac failure acute [Fatal]

NARRATIVE: CASE EVENT DATE: 202106
